FAERS Safety Report 18679354 (Version 1)
Quarter: 2020Q4

REPORT INFORMATION
  Report Type: Spontaneous
  Country: US (occurrence: US)
  Receive Date: 20201230
  Receipt Date: 20201230
  Transmission Date: 20210114
  Serious: No
  Sender: FDA-Public Use
  Company Number: US-HORIZON-2020HZN02816

PATIENT
  Age: 55 Year
  Sex: Female
  Weight: 86 kg

DRUGS (4)
  1. TRAZODONE [Concomitant]
     Active Substance: TRAZODONE HYDROCHLORIDE
  2. TEPEZZA [Suspect]
     Active Substance: TEPROTUMUMAB-TRBW
     Indication: HYPERTHYROIDISM
     Dosage: 37.8 ML=1800MG EVERY 3 WEEKS
     Route: 050
     Dates: start: 202011
  3. METHIMAZOLE. [Concomitant]
     Active Substance: METHIMAZOLE
  4. LINZESS [Concomitant]
     Active Substance: LINACLOTIDE

REACTIONS (2)
  - Malaise [Recovered/Resolved]
  - Blood glucose increased [Unknown]
